FAERS Safety Report 7954201-6 (Version None)
Quarter: 2011Q4

REPORT INFORMATION
  Report Type: 
  Country: None (occurrence: None)
  Receive Date: 20111202
  Receipt Date: 20111129
  Transmission Date: 20120403
  Serious: Yes (Other)
  Sender: FDA-Public Use
  Company Number: US-PFIZER INC-2011280195

PATIENT
  Sex: Female

DRUGS (2)
  1. PEDIATRIC ADVIL [Suspect]
     Indication: TEETHING
  2. PEDIATRIC ADVIL [Suspect]
     Indication: PYREXIA
     Dosage: RECOMMENDED DOSAGE AMOUNT FOR PATIENT'S AGE AND SIZE
     Route: 048
     Dates: start: 20111028, end: 20111028

REACTIONS (3)
  - OTITIS MEDIA ACUTE [None]
  - CIRCUMSTANCE OR INFORMATION CAPABLE OF LEADING TO MEDICATION ERROR [None]
  - UPPER RESPIRATORY TRACT INFECTION [None]
